FAERS Safety Report 5649189-7 (Version None)
Quarter: 2008Q1

REPORT INFORMATION
  Report Type: 
  Country: None (occurrence: None)
  Receive Date: 20080229
  Receipt Date: 20080225
  Transmission Date: 20080703
  Serious: Yes (Death)
  Sender: FDA-Public Use
  Company Number: 72633

PATIENT
  Age: 28 Year
  Sex: Male

DRUGS (2)
  1. DOXYLAMINE SUCCINATE [Suspect]
     Dosage: ORAL
     Route: 048
  2. DIAZEPAM, OXYCODONE, HYDROCODONE, TEMEPAZAM, ALPRAZOLAM [Suspect]
     Dosage: ORAL
     Route: 048

REACTIONS (1)
  - DRUG TOXICITY [None]
